FAERS Safety Report 12650287 (Version 1)
Quarter: 2016Q3

REPORT INFORMATION
  Report Type: Spontaneous
  Country: US (occurrence: US)
  Receive Date: 20160813
  Receipt Date: 20160813
  Transmission Date: 20161109
  Serious: No
  Sender: FDA-Public Use
  Company Number: US-CELGENEUS-USA-2016081936

PATIENT
  Age: 79 Year
  Sex: Male
  Weight: 84.44 kg

DRUGS (1)
  1. THALOMID [Suspect]
     Active Substance: THALIDOMIDE
     Indication: MYELOPROLIFERATIVE NEOPLASM
     Dosage: 50 MILLIGRAM
     Route: 048
     Dates: start: 20160418, end: 20160808

REACTIONS (4)
  - Therapy non-responder [Not Recovered/Not Resolved]
  - Platelet count increased [Not Recovered/Not Resolved]
  - Peripheral swelling [Unknown]
  - Heart rate decreased [Unknown]

NARRATIVE: CASE EVENT DATE: 2016
